FAERS Safety Report 4862674-0 (Version None)
Quarter: 2005Q4

REPORT INFORMATION
  Report Type: 
  Country: None (occurrence: None)
  Receive Date: 20051221
  Receipt Date: 20050914
  Transmission Date: 20060501
  Serious: Yes (Hospitalization, Disabling)
  Sender: FDA-Public Use
  Company Number: US-MERCK-0509USA02236

PATIENT
  Age: 53 Year
  Sex: Male
  Weight: 91 kg

DRUGS (11)
  1. VIOXX [Suspect]
     Indication: ARTHRITIS
     Route: 048
     Dates: start: 20000417, end: 20040930
  2. ZESTRIL [Concomitant]
     Route: 065
  3. CEPHALEXIN [Concomitant]
     Route: 065
  4. AMOXICILLIN [Concomitant]
     Route: 065
  5. HYDRODIURIL [Concomitant]
     Route: 065
     Dates: start: 19900101
  6. PROTONIX [Concomitant]
     Route: 065
  7. ZITHROMAX [Concomitant]
     Route: 065
     Dates: start: 19900101, end: 20021024
  8. FLONASE [Concomitant]
     Route: 065
  9. AMBIEN [Concomitant]
     Route: 065
  10. HYOSCYAMINE SULFATE [Concomitant]
     Route: 065
  11. NEXIUM [Concomitant]
     Route: 065

REACTIONS (9)
  - ANXIETY [None]
  - ASTHMA [None]
  - CORONARY ARTERY DISEASE [None]
  - GASTRIC DISORDER [None]
  - GASTROINTESTINAL DISORDER [None]
  - GASTROINTESTINAL HAEMORRHAGE [None]
  - INSOMNIA [None]
  - MYOCARDIAL INFARCTION [None]
  - SINUS DISORDER [None]
